FAERS Safety Report 6668289-6 (Version None)
Quarter: 2010Q2

REPORT INFORMATION
  Report Type: 
  Country: None (occurrence: None)
  Receive Date: 20100405
  Receipt Date: 20100405
  Transmission Date: 20101027
  Serious: Yes (Hospitalization)
  Sender: FDA-Public Use
  Company Number: None

PATIENT
  Age: 70 Year
  Sex: Male
  Weight: 102 kg

DRUGS (3)
  1. RISPERIDONE [Suspect]
     Indication: AGGRESSION
     Dosage: 1 MG BID PO
     Route: 048
     Dates: start: 20091201, end: 20100122
  2. RISPERIDONE [Suspect]
     Indication: DEMENTIA
     Dosage: 1 MG BID PO
     Route: 048
     Dates: start: 20091201, end: 20100122
  3. LEVOFLOXACIN [Suspect]
     Indication: PNEUMONIA
     Dates: start: 20100117, end: 20100121

REACTIONS (5)
  - ANAEMIA [None]
  - CONFUSIONAL STATE [None]
  - FALL [None]
  - LETHARGY [None]
  - UNRESPONSIVE TO STIMULI [None]
